FAERS Safety Report 8118769-1 (Version None)
Quarter: 2012Q1

REPORT INFORMATION
  Report Type: 
  Country: None (occurrence: None)
  Receive Date: 20120207
  Receipt Date: 20120130
  Transmission Date: 20120608
  Serious: Yes (Hospitalization)
  Sender: FDA-Public Use
  Company Number: US-CELGENEUS-163-21880-11112873

PATIENT
  Sex: Male

DRUGS (2)
  1. REVLIMID [Suspect]
     Indication: MULTIPLE MYELOMA
     Dosage: 25 MILLIGRAM
     Route: 048
     Dates: start: 20110728, end: 20111122
  2. DEXAMETHASONE TAB [Concomitant]
     Dosage: 5.7143 MILLIGRAM
     Route: 065
     Dates: start: 20110725

REACTIONS (2)
  - SPINAL COMPRESSION FRACTURE [None]
  - SPINAL FRACTURE [None]
